FAERS Safety Report 15755379 (Version 10)
Quarter: 2019Q4

REPORT INFORMATION
  Report Type: Spontaneous
  Country: JP (occurrence: JP)
  Receive Date: 20181224
  Receipt Date: 20191112
  Transmission Date: 20200122
  Serious: Yes (Hospitalization, Other)
  Sender: FDA-Public Use
  Company Number: JP-BRISTOL-MYERS SQUIBB COMPANY-BMS-2018-105097

PATIENT
  Sex: Female

DRUGS (2)
  1. OPDIVO [Suspect]
     Active Substance: NIVOLUMAB
     Indication: MALIGNANT MELANOMA
     Dosage: 80 MG / DAY
     Route: 041
     Dates: start: 20180823, end: 20180928
  2. YERVOY [Suspect]
     Active Substance: IPILIMUMAB
     Indication: MALIGNANT MELANOMA
     Dosage: 3 MG/KG, A DAY (150 MG)
     Route: 041
     Dates: start: 20180823, end: 20180928

REACTIONS (4)
  - Colitis [Recovering/Resolving]
  - Hyperthyroidism [Unknown]
  - Gastroduodenal ulcer [Unknown]
  - Oesophagitis [Unknown]
